FAERS Safety Report 4629290-7 (Version None)
Quarter: 2005Q2

REPORT INFORMATION
  Report Type: 
  Country: None (occurrence: None)
  Receive Date: 20050405
  Receipt Date: 20050405
  Transmission Date: 20051028
  Serious: Yes (Other)
  Sender: FDA-Public Use
  Company Number: None

PATIENT
  Age: 53 Year
  Sex: Male

DRUGS (2)
  1. FENTANYL MYLAN 25 MCG [Suspect]
     Dosage: 125 MG Q 2 D APPLIED TO SKIN
     Dates: start: 20050201
  2. FENTANYL MYLAN 100 MCG [Suspect]

REACTIONS (4)
  - DRUG WITHDRAWAL SYNDROME [None]
  - NAUSEA [None]
  - PAIN [None]
  - PHARMACEUTICAL PRODUCT COMPLAINT [None]
